FAERS Safety Report 25657578 (Version 2)
Quarter: 2025Q3

REPORT INFORMATION
  Report Type: Report from Study
  Country: US (occurrence: US)
  Receive Date: 20250808
  Receipt Date: 20250915
  Transmission Date: 20251021
  Serious: No
  Sender: ACADIA PHARMACEUTICALS
  Company Number: US-ACADIA PHARMACEUTICALS INC.-ACA-2025-PIM-009009

PATIENT
  Sex: Female

DRUGS (2)
  1. NUPLAZID [Suspect]
     Active Substance: PIMAVANSERIN TARTRATE
     Indication: Parkinson^s disease psychosis
     Route: 065
     Dates: end: 20250804
  2. NUPLAZID [Suspect]
     Active Substance: PIMAVANSERIN TARTRATE
     Route: 065
     Dates: start: 2025

REACTIONS (3)
  - Urinary tract infection [Recovered/Resolved]
  - Gait disturbance [Recovered/Resolved]
  - Fall [Unknown]
